FAERS Safety Report 6368540-6 (Version None)
Quarter: 2009Q3

REPORT INFORMATION
  Report Type: 
  Country: None (occurrence: None)
  Receive Date: 20090917
  Receipt Date: 20090917
  Transmission Date: 20100115
  Serious: Yes (Life-Threatening)
  Sender: FDA-Public Use
  Company Number: None

PATIENT
  Age: 43 Year
  Sex: Female
  Weight: 72.5755 kg

DRUGS (1)
  1. LAMICTAL ODT [Suspect]
     Indication: DEPRESSION
     Dosage: WK 1+2 25MG AT BEDTIME PO
     Route: 048
     Dates: start: 20090810, end: 20090915

REACTIONS (2)
  - FEAR [None]
  - SKIN ULCER [None]
